FAERS Safety Report 13673371 (Version 2)
Quarter: 2017Q3

REPORT INFORMATION
  Report Type: Report from Study
  Country: US (occurrence: US)
  Receive Date: 20170621
  Receipt Date: 20170712
  Transmission Date: 20171127
  Serious: Yes (Hospitalization)
  Sender: FDA-Public Use
  Company Number: PHHO2017US003487

PATIENT
  Age: 65 Year
  Sex: Male
  Weight: 78.3 kg

DRUGS (7)
  1. TACROLIMUS. [Concomitant]
     Active Substance: TACROLIMUS
     Indication: PROPHYLAXIS
  2. TACROLIMUS. [Concomitant]
     Active Substance: TACROLIMUS
     Indication: RENAL TRANSPLANT
     Dosage: 4 MG AM AND 5 MG PM
     Route: 048
     Dates: start: 20151110
  3. ZORTRESS [Suspect]
     Active Substance: EVEROLIMUS
     Indication: RENAL TRANSPLANT
     Dosage: 4.5 MG, BID
     Route: 048
     Dates: start: 20161110, end: 20170424
  4. PANTOPRAZOLE [Concomitant]
     Active Substance: PANTOPRAZOLE
     Indication: CHRONIC GASTRITIS
     Dosage: 40 MG, BID
     Route: 048
     Dates: start: 20170328
  5. RANITIDINE. [Concomitant]
     Active Substance: RANITIDINE
     Indication: CHRONIC GASTRITIS
     Dosage: 150 MG, BID
     Route: 048
     Dates: start: 20160801
  6. PREDNISONE. [Concomitant]
     Active Substance: PREDNISONE
     Indication: RENAL TRANSPLANT
     Dosage: 5 MG, BID
     Route: 048
     Dates: start: 20151110
  7. PREDNISONE. [Concomitant]
     Active Substance: PREDNISONE
     Indication: PROPHYLAXIS

REACTIONS (3)
  - Gastrointestinal haemorrhage [Recovered/Resolved]
  - Diverticulum intestinal [Recovered/Resolved]
  - Small intestinal obstruction [Not Recovered/Not Resolved]

NARRATIVE: CASE EVENT DATE: 20170207
